FAERS Safety Report 12803903 (Version 3)
Quarter: 2016Q4

REPORT INFORMATION
  Report Type: Report from Study
  Country: TW (occurrence: TW)
  Receive Date: 20161003
  Receipt Date: 20161011
  Transmission Date: 20170207
  Serious: Yes (Other)
  Sender: FDA-Public Use
  Company Number: TW-JNJFOC-20160925216

PATIENT
  Age: 40 Year
  Sex: Female
  Weight: 60 kg

DRUGS (3)
  1. STELARA [Suspect]
     Active Substance: USTEKINUMAB
     Indication: PSORIASIS
     Route: 058
  2. STELARA [Suspect]
     Active Substance: USTEKINUMAB
     Indication: PSORIASIS
     Route: 058
  3. STELARA [Suspect]
     Active Substance: USTEKINUMAB
     Indication: PSORIASIS
     Dosage: AT WEEK 0
     Route: 058
     Dates: start: 20121115

REACTIONS (1)
  - Latent tuberculosis [Not Recovered/Not Resolved]

NARRATIVE: CASE EVENT DATE: 20160914
